APPROVED DRUG PRODUCT: CYCLOSPORINE
Active Ingredient: CYCLOSPORINE
Strength: 0.05%
Dosage Form/Route: EMULSION;OPHTHALMIC
Application: A205894 | Product #001 | TE Code: AB
Applicant: MYLAN PHARMACEUTICALS INC
Approved: Feb 2, 2022 | RLD: No | RS: No | Type: RX